FAERS Safety Report 5177875-4 (Version None)
Quarter: 2006Q4

REPORT INFORMATION
  Report Type: 
  Country: None (occurrence: None)
  Receive Date: 20061208
  Receipt Date: 20061130
  Transmission Date: 20070319
  Serious: Yes (Other)
  Sender: FDA-Public Use
  Company Number: 2006147896

PATIENT
  Sex: Female

DRUGS (2)
  1. GEODON [Suspect]
     Dosage: 160 MG (80 MG, 2 IN 1 D), ORAL
     Route: 048
  2. SOLIAN                     (AMISULPRIDE) [Concomitant]

REACTIONS (3)
  - PARANOIA [None]
  - PSYCHOTIC DISORDER [None]
  - SOMNOLENCE [None]
